FAERS Safety Report 14122871 (Version 2)
Quarter: 2017Q4

REPORT INFORMATION
  Report Type: Spontaneous
  Country: FR (occurrence: FR)
  Receive Date: 20171025
  Receipt Date: 20171102
  Transmission Date: 20180321
  Serious: Yes (Hospitalization, Other)
  Sender: FDA-Public Use
  Company Number: FR-MERCK KGAA-2031345

PATIENT
  Age: 55 Year
  Sex: Female

DRUGS (12)
  1. LOGIFLOX [Concomitant]
     Active Substance: LOMEFLOXACIN
  2. TRAMADOL. [Concomitant]
     Active Substance: TRAMADOL
  3. CARDENSIEL [Concomitant]
     Active Substance: BISOPROLOL FUMARATE
  4. CRESTOR [Concomitant]
     Active Substance: ROSUVASTATIN CALCIUM
  5. CLARITYNE [Concomitant]
     Active Substance: LORATADINE
  6. NOVOTHYROX [Suspect]
     Active Substance: LEVOTHYROXINE SODIUM
     Indication: HYPOTHYROIDISM
     Route: 048
     Dates: start: 20170508
  7. FLECAINE LP [Concomitant]
     Active Substance: FLECAINIDE
  8. IXEL [Concomitant]
     Active Substance: MILNACIPRAN HYDROCHLORIDE
  9. ALDACTONE [Concomitant]
     Active Substance: SPIRONOLACTONE
  10. LETROZOLE. [Concomitant]
     Active Substance: LETROZOLE
  11. VIRLIX [Concomitant]
     Active Substance: CETIRIZINE HYDROCHLORIDE
  12. LEXOMIL [Concomitant]
     Active Substance: BROMAZEPAM

REACTIONS (8)
  - Fatigue [Not Recovered/Not Resolved]
  - Amnesia [Not Recovered/Not Resolved]
  - Arrhythmia [Not Recovered/Not Resolved]
  - Malaise [Not Recovered/Not Resolved]
  - Vertigo [Not Recovered/Not Resolved]
  - Muscle spasms [Not Recovered/Not Resolved]
  - Blood thyroid stimulating hormone [Recovered/Resolved]
  - Insomnia [Unknown]

NARRATIVE: CASE EVENT DATE: 201705
